FAERS Safety Report 9946132 (Version 1)
Quarter: 2014Q1

REPORT INFORMATION
  Report Type: Report from Study
  Country: AR (occurrence: AR)
  Receive Date: 20140303
  Receipt Date: 20140303
  Transmission Date: 20141002
  Serious: Yes (Other)
  Sender: FDA-Public Use
  Company Number: PHHY2014AR026029

PATIENT
  Sex: Female

DRUGS (2)
  1. EXFORGE HCT [Suspect]
     Indication: HYPERTENSION
     Dosage: 160/5/25 MG, DAILY
     Route: 048
  2. EXFORGE HCT [Suspect]
     Dosage: 160/5/12.5 MG, DAILY
     Route: 048

REACTIONS (1)
  - Ophthalmoplegia [Recovering/Resolving]
